FAERS Safety Report 8199076-8 (Version None)
Quarter: 2012Q1

REPORT INFORMATION
  Report Type: 
  Country: None (occurrence: None)
  Receive Date: 20120309
  Receipt Date: 20120307
  Transmission Date: 20120608
  Serious: Yes (Other)
  Sender: FDA-Public Use
  Company Number: DE-GLAXOSMITHKLINE-D0074652A

PATIENT
  Sex: Male

DRUGS (1)
  1. DUTASTERIDE/TAMSULOSIN HYDROCHLORIDE [Suspect]
     Dosage: .5MG UNKNOWN
     Route: 048

REACTIONS (4)
  - PRODUCT QUALITY ISSUE [None]
  - DIARRHOEA [None]
  - SYNCOPE [None]
  - NASAL CONGESTION [None]
